FAERS Safety Report 8727190 (Version 2)
Quarter: 2015Q2

REPORT INFORMATION
  Report Type: Report from Study
  Country: US (occurrence: US)
  Receive Date: 20120816
  Receipt Date: 20150406
  Transmission Date: 20150821
  Serious: Yes (Other)
  Sender: FDA-Public Use
  Company Number: US-ROCHE-1101300

PATIENT
  Sex: Male

DRUGS (7)
  1. VASOTEC [Concomitant]
     Active Substance: ENALAPRIL MALEATE
     Route: 065
  2. IMDUR [Concomitant]
     Active Substance: ISOSORBIDE MONONITRATE
     Route: 065
  3. LANOXIN [Concomitant]
     Active Substance: DIGOXIN
     Route: 065
  4. MICRONASE [Concomitant]
     Active Substance: GLYBURIDE
     Route: 065
  5. MICRO-K [Concomitant]
     Active Substance: POTASSIUM CHLORIDE
     Route: 065
  6. ACTIVASE [Suspect]
     Active Substance: ALTEPLASE
     Indication: ACUTE MYOCARDIAL INFARCTION
     Route: 065
  7. COUMADIN [Concomitant]
     Active Substance: WARFARIN SODIUM
     Route: 065

REACTIONS (6)
  - Melaena [Unknown]
  - Pericardial effusion [Unknown]
  - Cardiac tamponade [Unknown]
  - Transient ischaemic attack [Unknown]
  - Gastrointestinal haemorrhage [Recovered/Resolved]
  - Tachycardia [Unknown]
